FAERS Safety Report 25990343 (Version 1)
Quarter: 2025Q4

REPORT INFORMATION
  Report Type: Spontaneous
  Country: CA (occurrence: CA)
  Receive Date: 20251103
  Receipt Date: 20251103
  Transmission Date: 20260119
  Serious: Yes (Other)
  Sender: PFIZER
  Company Number: CA-PFIZER INC-202500214275

PATIENT
  Age: 84 Year
  Sex: Male

DRUGS (2)
  1. VYNDAMAX [Suspect]
     Active Substance: TAFAMIDIS
     Indication: Cardiac amyloidosis
     Dosage: 61 MG, 1X/DAY
     Route: 048
     Dates: start: 20231010
  2. LASIX [Concomitant]
     Active Substance: FUROSEMIDE
     Dosage: 40 MG, 2X/DAY

REACTIONS (9)
  - Interstitial lung disease [Unknown]
  - Chronic obstructive pulmonary disease [Unknown]
  - Weight decreased [Unknown]
  - N-terminal prohormone brain natriuretic peptide increased [Unknown]
  - Hypertrophy [Unknown]
  - Global longitudinal strain abnormal [Unknown]
  - Diastolic dysfunction [Unknown]
  - Atrial enlargement [Unknown]
  - Right ventricular systolic pressure increased [Unknown]

NARRATIVE: CASE EVENT DATE: 20250101
